FAERS Safety Report 13635462 (Version 1)
Quarter: 2017Q2

REPORT INFORMATION
  Report Type: Spontaneous
  Country: US (occurrence: US)
  Receive Date: 20170531
  Receipt Date: 20170531
  Transmission Date: 20170830
  Serious: No
  Sender: FDA-Public Use
  Company Number: US-ASTELLAS-1716612

PATIENT
  Age: 84 Year
  Sex: Female

DRUGS (2)
  1. TARCEVA [Suspect]
     Active Substance: ERLOTINIB HYDROCHLORIDE
     Indication: LUNG NEOPLASM MALIGNANT
     Route: 048
     Dates: start: 20160208
  2. TARCEVA [Suspect]
     Active Substance: ERLOTINIB HYDROCHLORIDE
     Route: 048
     Dates: start: 20160228

REACTIONS (12)
  - Epistaxis [Unknown]
  - Rash [Not Recovered/Not Resolved]
  - Nausea [Unknown]
  - Diarrhoea [Unknown]
  - Acne [Unknown]
  - Dacryostenosis acquired [Unknown]
  - Alopecia [Unknown]
  - Eye pruritus [Unknown]
  - Urticaria [Unknown]
  - Staphylococcal infection [Unknown]
  - Dizziness [Unknown]
  - Dry eye [Unknown]

NARRATIVE: CASE EVENT DATE: 201603
